FAERS Safety Report 5649240-4 (Version None)
Quarter: 2008Q1

REPORT INFORMATION
  Report Type: 
  Country: None (occurrence: None)
  Receive Date: 20080304
  Receipt Date: 20071121
  Transmission Date: 20080703
  Serious: No
  Sender: FDA-Public Use
  Company Number: US-BAYER-200715584NA

PATIENT
  Age: 50 Year
  Sex: Female
  Weight: 82 kg

DRUGS (2)
  1. MAGNEVIST [Suspect]
     Indication: NUCLEAR MAGNETIC RESONANCE IMAGING
     Dosage: TOTAL DAILY DOSE: 20 ML  UNIT DOSE: 20 ML
     Route: 042
     Dates: start: 20071121, end: 20071121
  2. LEVOXYL [Concomitant]

REACTIONS (6)
  - CONJUNCTIVITIS [None]
  - HYPHAEMA [None]
  - NASAL CONGESTION [None]
  - PRURITUS GENERALISED [None]
  - SKIN DISCOLOURATION [None]
  - URTICARIA [None]
